FAERS Safety Report 5046216-5 (Version None)
Quarter: 2006Q2

REPORT INFORMATION
  Report Type: 
  Country: None (occurrence: None)
  Receive Date: 20060629
  Receipt Date: 20060616
  Transmission Date: 20061013
  Serious: Yes (Hospitalization, Disabling)
  Sender: FDA-Public Use
  Company Number: 2006076520

PATIENT
  Age: 38 Year
  Sex: Female
  Weight: 59.4212 kg

DRUGS (2)
  1. DETROL LA [Suspect]
     Indication: BLADDER DISORDER
     Dosage: ORAL
     Route: 048
     Dates: start: 20040101
  2. ORAL CONTRACEPTIVE (ORAL CONTRACEPTIVE NOS) [Concomitant]

REACTIONS (4)
  - DRY MOUTH [None]
  - ECONOMIC PROBLEM [None]
  - INTERVERTEBRAL DISC OPERATION [None]
  - ROAD TRAFFIC ACCIDENT [None]
